FAERS Safety Report 8616350 (Version 3)
Quarter: 2013Q1

REPORT INFORMATION
  Report Type: Spontaneous
  Country: US (occurrence: US)
  Receive Date: 20120614
  Receipt Date: 20130124
  Transmission Date: 20140127
  Serious: Yes (Other)
  Sender: FDA-Public Use
  Company Number: US-ELI_LILLY_AND_COMPANY-US201206002116

PATIENT
  Age: 64 None
  Sex: Female

DRUGS (5)
  1. FORTEO [Suspect]
     Indication: OSTEOPENIA
     Dosage: 20 UG, QD
     Dates: start: 20060501, end: 200804
  2. FORTEO [Suspect]
     Dosage: 20 UG, QD
     Dates: start: 20120428
  3. FORTEO [Suspect]
     Dosage: 20 UG, QD
     Dates: start: 20120428
  4. BONIVA [Concomitant]
     Indication: OSTEOPOROSIS
  5. FOSAMAX [Concomitant]
     Indication: OSTEOPOROSIS

REACTIONS (4)
  - Femur fracture [Unknown]
  - Femur fracture [Unknown]
  - Incorrect drug administration duration [Not Recovered/Not Resolved]
  - Drug dose omission [Unknown]
